FAERS Safety Report 7204723-0 (Version None)
Quarter: 2010Q4

REPORT INFORMATION
  Report Type: 
  Country: None (occurrence: None)
  Receive Date: 20101230
  Receipt Date: 20101221
  Transmission Date: 20110411
  Serious: Yes (Other)
  Sender: FDA-Public Use
  Company Number: JP-AMGEN-JPNCT2010011967

PATIENT

DRUGS (13)
  1. PANITUMUMAB [Suspect]
     Indication: COLORECTAL CANCER
     Dosage: 6 MG/KG, Q2WK
     Route: 041
     Dates: start: 20100909
  2. IRINOTECAN HYDROCHLORIDE [Suspect]
     Indication: COLORECTAL CANCER
     Route: 041
     Dates: start: 20100909, end: 20100911
  3. FLUOROURACIL [Suspect]
     Indication: COLORECTAL CANCER
     Route: 040
     Dates: start: 20100909, end: 20100911
  4. FLUOROURACIL [Suspect]
     Route: 041
     Dates: start: 20100909, end: 20100911
  5. DECADRON [Suspect]
     Dosage: UNK
     Route: 042
  6. TAKEPRON [Concomitant]
     Dosage: UNK
     Route: 048
  7. CALCIUM LEVOFOLINATE [Concomitant]
     Indication: COLORECTAL CANCER
     Route: 041
     Dates: start: 20100909, end: 20100911
  8. ALOXI [Concomitant]
     Dosage: UNK
     Route: 042
  9. OXINORM [Concomitant]
     Dosage: UNK
     Route: 048
  10. OXYCONTIN [Concomitant]
     Dosage: UNK
     Route: 048
  11. LOXONIN [Concomitant]
     Dosage: UNK
     Route: 048
  12. PROMAC [Concomitant]
     Dosage: UNK
     Route: 048
  13. PRIMPERAN TAB [Concomitant]
     Dosage: UNK
     Route: 048

REACTIONS (9)
  - ABDOMINAL PAIN [None]
  - ACNE [None]
  - CONSTIPATION [None]
  - DECREASED APPETITE [None]
  - LARGE INTESTINAL HAEMORRHAGE [None]
  - MALAISE [None]
  - NAUSEA [None]
  - PARONYCHIA [None]
  - PYREXIA [None]
